FAERS Safety Report 18093618 (Version 1)
Quarter: 2020Q3

REPORT INFORMATION
  Report Type: Spontaneous
  Country: GB (occurrence: GB)
  Receive Date: 20200730
  Receipt Date: 20200730
  Transmission Date: 20201103
  Serious: Yes (Other)
  Sender: FDA-Public Use
  Company Number: GB-MYLANLABS-2020M1067157

PATIENT
  Age: 38 Year
  Sex: Female
  Weight: 63.5 kg

DRUGS (1)
  1. PAROXETINE. [Suspect]
     Active Substance: PAROXETINE
     Indication: ANXIETY
     Dosage: 20 MILLIGRAM
     Route: 048
     Dates: start: 19951231, end: 20200708

REACTIONS (4)
  - Drug withdrawal syndrome [Not Recovered/Not Resolved]
  - Paraesthesia [Unknown]
  - Depressive symptom [Unknown]
  - Nausea [Unknown]

NARRATIVE: CASE EVENT DATE: 20200708
